FAERS Safety Report 8578495-1 (Version None)
Quarter: 2012Q3

REPORT INFORMATION
  Report Type: 
  Country: None (occurrence: None)
  Receive Date: 20120808
  Receipt Date: 20120730
  Transmission Date: 20120928
  Serious: Yes (Hospitalization)
  Sender: FDA-Public Use
  Company Number: US-JNJFOC-20120800898

PATIENT
  Age: 66 Year
  Sex: Female
  Weight: 93.44 kg

DRUGS (9)
  1. EXTRA STRENGTH TYLENOL [Suspect]
     Indication: BACK PAIN
     Dosage: 500MG/CAPLET
     Route: 048
     Dates: start: 20101201
  2. NADOLOL [Concomitant]
     Indication: ARRHYTHMIA PROPHYLAXIS
     Dosage: 1 1/2 PILLS 2 TIMES A DAY
     Route: 065
     Dates: start: 20100101
  3. TRIAVIL [Concomitant]
     Indication: PRODUCT USED FOR UNKNOWN INDICATION
     Dosage: 4-25MG
     Route: 065
     Dates: start: 19920101
  4. OMEPRAZOLE [Concomitant]
     Indication: GASTRIC DISORDER
     Route: 065
     Dates: start: 20090101
  5. MECLIZINE [Concomitant]
     Indication: VERTIGO
     Route: 065
     Dates: start: 20000101
  6. GLIMEPIRIDE [Concomitant]
     Indication: VERTIGO
     Route: 065
     Dates: start: 19970101
  7. SIMVASTATIN [Concomitant]
     Route: 065
     Dates: start: 20100101
  8. METFORMIN HYDROCHLORIDE [Concomitant]
     Indication: DIABETES MELLITUS
     Route: 065
     Dates: start: 20100101
  9. LISINOPRIL [Concomitant]
     Indication: HYPERTENSION
     Route: 065
     Dates: start: 20100101

REACTIONS (5)
  - HEPATIC CIRRHOSIS [None]
  - INTENTIONAL DRUG MISUSE [None]
  - MEMORY IMPAIRMENT [None]
  - GASTRIC HAEMORRHAGE [None]
  - ABDOMINAL TENDERNESS [None]
